FAERS Safety Report 9644032 (Version 1)
Quarter: 2013Q4

REPORT INFORMATION
  Report Type: Spontaneous
  Country: IT (occurrence: IT)
  Receive Date: 20131024
  Receipt Date: 20131024
  Transmission Date: 20140711
  Serious: Yes (Life-Threatening)
  Sender: FDA-Public Use
  Company Number: PHHY2013IT116776

PATIENT
  Age: 84 Year
  Sex: Female

DRUGS (4)
  1. BISOPROLOL [Suspect]
     Indication: HYPERTENSION
     Dosage: 10 MG, QD
     Route: 048
     Dates: start: 20120101, end: 20130803
  2. LANOXIN [Suspect]
     Indication: ATRIAL FIBRILLATION
     Dosage: 0.125 MG, QD
     Dates: start: 20130101, end: 20130803
  3. TAPAZOLE [Concomitant]
     Indication: HYPERTHYROIDISM
  4. COUMADIN SODIUM [Concomitant]
     Indication: ATRIAL FIBRILLATION

REACTIONS (2)
  - Atrioventricular block [Recovered/Resolved]
  - Hyperkalaemia [Recovered/Resolved]
